FAERS Safety Report 7808022-5 (Version None)
Quarter: 2011Q4

REPORT INFORMATION
  Report Type: 
  Country: None (occurrence: None)
  Receive Date: 20111011
  Receipt Date: 20111011
  Transmission Date: 20120403
  Serious: Yes (Other)
  Sender: FDA-Public Use
  Company Number: None

PATIENT
  Age: 61 Year
  Sex: Female
  Weight: 111.58 kg

DRUGS (1)
  1. PRAVASTATIN [Suspect]
     Indication: BLOOD CHOLESTEROL
     Dosage: 20MG
     Route: 048
     Dates: start: 20100701, end: 20100703

REACTIONS (5)
  - MUSCULAR WEAKNESS [None]
  - ARTHRALGIA [None]
  - CHILLS [None]
  - CRYING [None]
  - BODY TEMPERATURE INCREASED [None]
